FAERS Safety Report 24088488 (Version 1)
Quarter: 2024Q3

REPORT INFORMATION
  Report Type: Spontaneous
  Country: US (occurrence: US)
  Receive Date: 20240715
  Receipt Date: 20240715
  Transmission Date: 20241016
  Serious: No
  Sender: RANBAXY
  Company Number: US-SUN PHARMACEUTICAL INDUSTRIES LTD-2023R1-403069

PATIENT
  Sex: Female

DRUGS (3)
  1. AZELASTINE [Suspect]
     Active Substance: AZELASTINE\AZELASTINE HYDROCHLORIDE
     Indication: Hypersensitivity
     Dosage: UNK, BID (137 MCG PER SPRAY)
     Route: 045
     Dates: start: 202206
  2. AZELASTINE [Suspect]
     Active Substance: AZELASTINE\AZELASTINE HYDROCHLORIDE
     Dosage: UNK, QD  (137 MCG PER SPRAY)
     Route: 045
  3. AZELASTINE [Suspect]
     Active Substance: AZELASTINE\AZELASTINE HYDROCHLORIDE
     Dosage: UNK,  (137 MCG PER SPRAY)
     Route: 045
     Dates: start: 20230726

REACTIONS (3)
  - Sneezing [Recovering/Resolving]
  - Nasal pruritus [Recovering/Resolving]
  - Nasal discomfort [Recovering/Resolving]
